FAERS Safety Report 21480037 (Version 1)
Quarter: 2022Q4

REPORT INFORMATION
  Report Type: Report from Study
  Country: FR (occurrence: FR)
  Receive Date: 20221019
  Receipt Date: 20221019
  Transmission Date: 20230112
  Serious: Yes (Hospitalization)
  Sender: FDA-Public Use
  Company Number: FR-ROCHE-3165521

PATIENT
  Age: 56 Year
  Sex: Female

DRUGS (4)
  1. CISPLATIN [Suspect]
     Active Substance: CISPLATIN
     Indication: Cervix carcinoma
     Dosage: 40 MILLIGRAM/SQ. METER
     Route: 042
     Dates: start: 20220629
  2. ATEZOLIZUMAB [Suspect]
     Active Substance: ATEZOLIZUMAB
     Indication: Cervix carcinoma
     Dosage: 1200 MILLIGRAM
     Route: 042
     Dates: start: 20220331
  3. PENTASA [Concomitant]
     Active Substance: MESALAMINE
     Route: 065
  4. TITANOREINE [Concomitant]
     Active Substance: CARRAGEENAN\TITANIUM\ZINC
     Route: 065

REACTIONS (2)
  - Colitis [Not Recovered/Not Resolved]
  - Radiation proctitis [Recovered/Resolved]

NARRATIVE: CASE EVENT DATE: 20220505
